FAERS Safety Report 13130281 (Version 2)
Quarter: 2017Q1

REPORT INFORMATION
  Report Type: Spontaneous
  Country: JP (occurrence: JP)
  Receive Date: 20170119
  Receipt Date: 20170124
  Transmission Date: 20170428
  Serious: Yes (Other)
  Sender: FDA-Public Use
  Company Number: JP-BAYER-2017-007523

PATIENT
  Age: 50 Year
  Sex: Female
  Weight: 47 kg

DRUGS (4)
  1. 5-FLUOROURACIL [Concomitant]
     Active Substance: FLUOROURACIL
  2. CISPLATIN. [Concomitant]
     Active Substance: CISPLATIN
     Dosage: ONE SHOT INTRA-ARTERIAL INJECTION
  3. NEXAVAR [Suspect]
     Active Substance: SORAFENIB
     Indication: MIXED HEPATOCELLULAR CHOLANGIOCARCINOMA
     Dosage: DAILY DOSE 400 MG
     Route: 048
  4. NEXAVAR [Suspect]
     Active Substance: SORAFENIB
     Indication: MIXED HEPATOCELLULAR CHOLANGIOCARCINOMA
     Dosage: DAILY DOSE 800 MG
     Route: 048

REACTIONS (8)
  - Metastases to bone [None]
  - Decreased appetite [None]
  - Palmar-plantar erythrodysaesthesia syndrome [None]
  - Mixed hepatocellular cholangiocarcinoma [None]
  - Cachexia [None]
  - General physical health deterioration [Recovering/Resolving]
  - Ascites [None]
  - Malaise [None]
